FAERS Safety Report 23360950 (Version 1)
Quarter: 2023Q4

REPORT INFORMATION
  Report Type: Spontaneous
  Country: US (occurrence: None)
  Receive Date: 20231229
  Receipt Date: 20231229
  Transmission Date: 20240110
  Serious: Yes (Hospitalization)
  Sender: FDA-Public Use
  Company Number: None

PATIENT
  Age: 74 Year
  Sex: Female
  Weight: 106.6 kg

DRUGS (1)
  1. TECARTUS [Suspect]
     Active Substance: BREXUCABTAGENE AUTOLEUCEL

REACTIONS (17)
  - Cytokine release syndrome [None]
  - Confusional state [None]
  - Disorientation [None]
  - Memory impairment [None]
  - Loss of personal independence in daily activities [None]
  - Depressed level of consciousness [None]
  - Delirium [None]
  - Mental impairment [None]
  - Epilepsy [None]
  - Acute myocardial infarction [None]
  - Staphylococcal sepsis [None]
  - Pseudomonas infection [None]
  - Urinary tract infection pseudomonal [None]
  - Alpha haemolytic streptococcal infection [None]
  - Vulvovaginal candidiasis [None]
  - Human herpesvirus 6 infection [None]
  - Unevaluable event [None]

NARRATIVE: CASE EVENT DATE: 20231004
